FAERS Safety Report 17209968 (Version 3)
Quarter: 2020Q4

REPORT INFORMATION
  Report Type: Spontaneous
  Country: US (occurrence: US)
  Receive Date: 20191227
  Receipt Date: 20201111
  Transmission Date: 20210113
  Serious: Yes (Hospitalization, Other)
  Sender: FDA-Public Use
  Company Number: US-ASTRAZENECA-2019SF87465

PATIENT
  Age: 16784 Day
  Sex: Male
  Weight: 112 kg

DRUGS (40)
  1. XIGDUO XR [Suspect]
     Active Substance: DAPAGLIFLOZIN PROPANEDIOL\METFORMIN HYDROCHLORIDE
     Indication: BLOOD PRESSURE DECREASED
     Route: 048
     Dates: start: 20170103
  2. XIGDUO XR [Suspect]
     Active Substance: DAPAGLIFLOZIN PROPANEDIOL\METFORMIN HYDROCHLORIDE
     Indication: BLOOD PRESSURE DECREASED
     Route: 048
     Dates: start: 20170202, end: 20180813
  3. XIGDUO XR [Suspect]
     Active Substance: DAPAGLIFLOZIN PROPANEDIOL\METFORMIN HYDROCHLORIDE
     Indication: TYPE 2 DIABETES MELLITUS
     Route: 048
     Dates: start: 20180215
  4. GABAPENTIN. [Concomitant]
     Active Substance: GABAPENTIN
     Dates: start: 20180109
  5. TRESIBA [Concomitant]
     Active Substance: INSULIN DEGLUDEC
     Dates: start: 20180109
  6. OXYCODONE [Concomitant]
     Active Substance: OXYCODONE
     Dates: start: 20180215
  7. HYDROCODONE-ACETAMINOPHEN [Concomitant]
     Active Substance: ACETAMINOPHEN\HYDROCODONE
  8. XIGDUO XR [Suspect]
     Active Substance: DAPAGLIFLOZIN PROPANEDIOL\METFORMIN HYDROCHLORIDE
     Indication: WEIGHT DECREASED
     Route: 048
     Dates: start: 20170202, end: 20180813
  9. XIGDUO XR [Suspect]
     Active Substance: DAPAGLIFLOZIN PROPANEDIOL\METFORMIN HYDROCHLORIDE
     Indication: BLOOD PRESSURE DECREASED
     Dosage: 5-100 MG EVERY MORNIG, GENERIC
     Route: 048
     Dates: start: 20180109
  10. SILDENAFIL. [Concomitant]
     Active Substance: SILDENAFIL
  11. LEVEMIR [Concomitant]
     Active Substance: INSULIN DETEMIR
     Dates: start: 20161020
  12. XIGDUO XR [Suspect]
     Active Substance: DAPAGLIFLOZIN PROPANEDIOL\METFORMIN HYDROCHLORIDE
     Indication: BLOOD PRESSURE DECREASED
     Route: 048
     Dates: start: 20180215
  13. DICLOFENAC [Concomitant]
     Active Substance: DICLOFENAC
     Dates: start: 20180109
  14. FARXIGA [Suspect]
     Active Substance: DAPAGLIFLOZIN PROPANEDIOL
     Indication: TYPE 2 DIABETES MELLITUS
     Route: 048
  15. XIGDUO XR [Suspect]
     Active Substance: DAPAGLIFLOZIN PROPANEDIOL\METFORMIN HYDROCHLORIDE
     Indication: WEIGHT DECREASED
     Route: 048
     Dates: start: 20170103
  16. XIGDUO XR [Suspect]
     Active Substance: DAPAGLIFLOZIN PROPANEDIOL\METFORMIN HYDROCHLORIDE
     Indication: WEIGHT DECREASED
     Route: 048
     Dates: start: 20180215
  17. NOVOLOG [Concomitant]
     Active Substance: INSULIN ASPART
     Dates: start: 20180109
  18. PROVIGIL [Concomitant]
     Active Substance: MODAFINIL
  19. XIGDUO XR [Suspect]
     Active Substance: DAPAGLIFLOZIN PROPANEDIOL\METFORMIN HYDROCHLORIDE
     Indication: TYPE 2 DIABETES MELLITUS
     Route: 048
     Dates: start: 20170202, end: 20180813
  20. TIZANIDINE. [Concomitant]
     Active Substance: TIZANIDINE
  21. AMOXICILLIN. [Concomitant]
     Active Substance: AMOXICILLIN
  22. DOCUSATE [Concomitant]
     Active Substance: DOCUSATE
  23. LISINOPRIL. [Concomitant]
     Active Substance: LISINOPRIL
  24. IBUPROFEN. [Concomitant]
     Active Substance: IBUPROFEN
  25. FLEXERIL [Concomitant]
     Active Substance: CYCLOBENZAPRINE HYDROCHLORIDE
  26. FARXIGA [Suspect]
     Active Substance: DAPAGLIFLOZIN PROPANEDIOL
     Indication: BLOOD PRESSURE DECREASED
     Route: 048
  27. INVOKANA [Concomitant]
     Active Substance: CANAGLIFLOZIN
  28. SENNA [Concomitant]
     Active Substance: SENNA LEAF\SENNOSIDES\SENNOSIDES A AND B
  29. XIGDUO XR [Suspect]
     Active Substance: DAPAGLIFLOZIN PROPANEDIOL\METFORMIN HYDROCHLORIDE
     Indication: TYPE 2 DIABETES MELLITUS
     Dosage: 5-100 MG EVERY MORNIG, GENERIC
     Route: 048
     Dates: start: 20180109
  30. XIGDUO XR [Suspect]
     Active Substance: DAPAGLIFLOZIN PROPANEDIOL\METFORMIN HYDROCHLORIDE
     Indication: WEIGHT DECREASED
     Dosage: 5-100 MG EVERY MORNIG, GENERIC
     Route: 048
     Dates: start: 20180109
  31. VIAGRA [Concomitant]
     Active Substance: SILDENAFIL CITRATE
  32. ATORVASTATIN [Concomitant]
     Active Substance: ATORVASTATIN
  33. DOXEPIN [Concomitant]
     Active Substance: DOXEPIN
     Dates: start: 20170818
  34. ALPRAZOLAM. [Concomitant]
     Active Substance: ALPRAZOLAM
     Dates: start: 20150515
  35. METFORMIN [Concomitant]
     Active Substance: METFORMIN HYDROCHLORIDE
     Dates: start: 20160311
  36. XIGDUO XR [Suspect]
     Active Substance: DAPAGLIFLOZIN PROPANEDIOL\METFORMIN HYDROCHLORIDE
     Indication: TYPE 2 DIABETES MELLITUS
     Route: 048
     Dates: start: 20170103
  37. MELOXICAM. [Concomitant]
     Active Substance: MELOXICAM
     Dates: start: 20180109
  38. HYDROCODONE [Concomitant]
     Active Substance: HYDROCODONE
  39. CHLORHEXIDINE [Concomitant]
     Active Substance: CHLORHEXIDINE
  40. LYRICA [Concomitant]
     Active Substance: PREGABALIN
     Dates: start: 20150128

REACTIONS (3)
  - Inguinal hernia gangrenous [Unknown]
  - Fournier^s gangrene [Unknown]
  - Scrotal abscess [Unknown]

NARRATIVE: CASE EVENT DATE: 20180125
